FAERS Safety Report 7269948-7 (Version None)
Quarter: 2010Q4

REPORT INFORMATION
  Report Type: 
  Country: None (occurrence: None)
  Receive Date: 20101130
  Receipt Date: 20090805
  Transmission Date: 20110411
  Serious: Yes (Hospitalization, Other)
  Sender: FDA-Public Use
  Company Number: 2009-189324-NL

PATIENT
  Age: 33 Year
  Sex: Female
  Weight: 80 kg

DRUGS (4)
  1. NUVARING [Suspect]
     Indication: CONTRACEPTION
     Dosage: 1 DF; Q3W; VAG
     Route: 067
     Dates: start: 20050809, end: 20070401
  2. NUVARING [Suspect]
     Indication: MENSTRUATION IRREGULAR
     Dosage: 1 DF; Q3W; VAG
     Route: 067
     Dates: start: 20050809, end: 20070401
  3. MULTI-VITAMIN [Concomitant]
  4. HYDROCHLOROTHIAZIDE [Concomitant]

REACTIONS (3)
  - DEEP VEIN THROMBOSIS [None]
  - HEADACHE [None]
  - HYPERTENSION [None]
